FAERS Safety Report 19026954 (Version 6)
Quarter: 2024Q3

REPORT INFORMATION
  Report Type: Spontaneous
  Country: PL (occurrence: PL)
  Receive Date: 20210318
  Receipt Date: 20240703
  Transmission Date: 20241017
  Serious: Yes (Hospitalization, Other)
  Sender: NOVARTIS
  Company Number: None

PATIENT
  Age: 46 Year
  Sex: Male

DRUGS (27)
  1. ENTRESTO [Suspect]
     Active Substance: SACUBITRIL\VALSARTAN
     Indication: Cardiac failure chronic
     Dosage: 2 DF (OF 49/51MG)/2 DF (OF 24/26MG)
     Route: 065
     Dates: start: 20191128
  2. ENTRESTO [Suspect]
     Active Substance: SACUBITRIL\VALSARTAN
     Indication: Cardiac failure chronic
     Dosage: 2 DF (OF 49/51MG)
     Route: 065
  3. ENTRESTO [Suspect]
     Active Substance: SACUBITRIL\VALSARTAN
     Dosage: 2 DF (OF 49/51MG), 2DF (OF 24/26MG)
     Route: 065
  4. ENTRESTO [Suspect]
     Active Substance: SACUBITRIL\VALSARTAN
     Dosage: 1 DF, Q12H
     Route: 065
  5. ENTRESTO [Suspect]
     Active Substance: SACUBITRIL\VALSARTAN
     Dosage: 2 DF (OF 24/26MG)
     Route: 065
  6. ENTRESTO [Suspect]
     Active Substance: SACUBITRIL\VALSARTAN
     Dosage: 1 DOSAGE FORM, Q12H
     Route: 065
  7. ENTRESTO [Suspect]
     Active Substance: SACUBITRIL\VALSARTAN
     Dosage: 2 DF (OF 24/26MG)
     Route: 065
  8. RAMIPRIL [Suspect]
     Active Substance: RAMIPRIL
     Indication: Cardiac failure chronic
     Dosage: 1 DF, QD
     Route: 065
  9. ROSUVASTATIN [Suspect]
     Active Substance: ROSUVASTATIN
     Indication: Cardiac failure chronic
     Dosage: 1 DF, QD
     Route: 065
  10. CARVEDILOL [Suspect]
     Active Substance: CARVEDILOL
     Indication: Cardiac failure chronic
     Dosage: 2 DF, QD
     Route: 065
  11. CARVEDILOL [Suspect]
     Active Substance: CARVEDILOL
     Dosage: 2 DOSAGE FORM, QD (2 DF, QD)
     Route: 065
  12. CARVEDILOL [Suspect]
     Active Substance: CARVEDILOL
     Dosage: 1 DF, Q12H
     Route: 065
  13. CARVEDILOL [Suspect]
     Active Substance: CARVEDILOL
     Dosage: 1 DOSAGE FORM, QD
     Route: 065
  14. CARVEDILOL [Suspect]
     Active Substance: CARVEDILOL
     Route: 065
  15. CARVEDILOL [Suspect]
     Active Substance: CARVEDILOL
     Dosage: 2 DOSAGE FORM, QD (1 DF, BID)
     Route: 065
  16. CARVEDILOL [Suspect]
     Active Substance: CARVEDILOL
     Dosage: 1 DOSAGE FORM, Q12H
     Route: 065
  17. ATORVASTATIN [Suspect]
     Active Substance: ATORVASTATIN
     Indication: Cardiac failure chronic
     Dosage: 1 DOSAGE FORM, QD
     Route: 048
  18. EPLERENONE [Suspect]
     Active Substance: EPLERENONE
     Indication: Cardiac failure chronic
     Dosage: AT NOON
     Route: 065
  19. IVABRADINE HYDROCHLORIDE [Suspect]
     Active Substance: IVABRADINE HYDROCHLORIDE
     Indication: Cardiac failure chronic
     Dosage: 10 DOSAGE FORM, QD, (0.5 DF, BID)
     Route: 065
  20. IVABRADINE HYDROCHLORIDE [Suspect]
     Active Substance: IVABRADINE HYDROCHLORIDE
     Dosage: 5 DOSAGE FORM, Q12H
     Route: 065
  21. IVABRADINE HYDROCHLORIDE [Suspect]
     Active Substance: IVABRADINE HYDROCHLORIDE
     Dosage: 1 DOSAGE FORM, QD
     Route: 065
  22. IVABRADINE HYDROCHLORIDE [Suspect]
     Active Substance: IVABRADINE HYDROCHLORIDE
     Dosage: 10 DOSAGE FORM, QD (5 DF, BID)
     Route: 065
  23. IVABRADINE HYDROCHLORIDE [Suspect]
     Active Substance: IVABRADINE HYDROCHLORIDE
     Dosage: 1 DOSAGE FORM, QD (0.5 DF, BID)
     Route: 065
  24. TORSEMIDE [Suspect]
     Active Substance: TORSEMIDE
     Indication: Cardiac failure chronic
     Dosage: 20 MG
     Route: 065
  25. ASPIRIN [Suspect]
     Active Substance: ASPIRIN
     Indication: Cardiac failure chronic
     Dosage: 1 DF, QD
     Route: 065
  26. IVABRADINE [Suspect]
     Active Substance: IVABRADINE
     Indication: Cardiac failure chronic
     Dosage: 10 MG, QD
     Route: 065
  27. IVABRADINE [Suspect]
     Active Substance: IVABRADINE
     Dosage: 10 MG, QD (5 DF, BID)
     Route: 065

REACTIONS (11)
  - Electrocardiogram abnormal [Unknown]
  - Computerised tomogram heart abnormal [Unknown]
  - Hypotension [Unknown]
  - Cardiac failure [Recovered/Resolved]
  - Bradycardia [Unknown]
  - Overdose [Unknown]
  - Feeling abnormal [Unknown]
  - Cardiac failure [Recovered/Resolved]
  - Cardiac failure [Recovered/Resolved]
  - Cardiac failure [Recovered/Resolved]
  - Overdose [Unknown]

NARRATIVE: CASE EVENT DATE: 20190522
